FAERS Safety Report 25136393 (Version 1)
Quarter: 2025Q1

REPORT INFORMATION
  Report Type: Spontaneous
  Country: US (occurrence: US)
  Receive Date: 20250328
  Receipt Date: 20250328
  Transmission Date: 20250409
  Serious: Yes (Death, Other)
  Sender: ALEXION PHARMACEUTICALS
  Company Number: US-ASTRAZENECA-202503USA006099US

PATIENT
  Age: 54 Year
  Weight: 66.7 kg

DRUGS (5)
  1. OLAPARIB [Suspect]
     Active Substance: OLAPARIB
     Indication: Neoplasm
     Dosage: 300 MILLIGRAM, BID
  2. LEVOTHYROXINE [Concomitant]
     Active Substance: LEVOTHYROXINE
     Route: 065
  3. MIRTAZAPINE [Concomitant]
     Active Substance: MIRTAZAPINE
     Route: 065
  4. BUPRENORPHINE [Concomitant]
     Active Substance: BUPRENORPHINE
     Route: 065
  5. OXYCODONE [Concomitant]
     Active Substance: OXYCODONE
     Route: 065

REACTIONS (15)
  - Sudden cardiac death [Fatal]
  - Visual impairment [Unknown]
  - Loss of consciousness [Unknown]
  - Pulmonary embolism [Unknown]
  - Biopsy pericardium abnormal [Unknown]
  - Arteriosclerosis [Unknown]
  - Pleural fluid analysis abnormal [Unknown]
  - Pleural fibrosis [Unknown]
  - Biopsy pleura [Unknown]
  - Mass [Unknown]
  - Biopsy liver abnormal [Unknown]
  - Biopsy kidney [Unknown]
  - Peritoneal fluid analysis abnormal [Unknown]
  - Nodule [Unknown]
  - Drug level abnormal [Unknown]
